FAERS Safety Report 9759696 (Version 1)
Quarter: 2013Q4

REPORT INFORMATION
  Report Type: Spontaneous
  Country: US (occurrence: US)
  Receive Date: 20131216
  Receipt Date: 20131216
  Transmission Date: 20140711
  Serious: No
  Sender: FDA-Public Use
  Company Number: US-GILEAD-2010-0029017

PATIENT
  Age: 71 Year
  Sex: Male
  Weight: 77.11 kg

DRUGS (14)
  1. LETAIRIS [Suspect]
     Indication: PULMONARY ARTERIAL HYPERTENSION
     Route: 048
     Dates: start: 20100414, end: 20100503
  2. BENADRYL [Concomitant]
  3. TERAZOSIN [Concomitant]
  4. ASPIRIN [Concomitant]
  5. CRESTOR [Concomitant]
  6. METOPROLOL TARTRATE [Concomitant]
  7. PLAVIX [Concomitant]
  8. IRON [Concomitant]
  9. OMEGA 3 [Concomitant]
  10. SAW PALMETTO [Concomitant]
  11. AMITRIPTYLINE [Concomitant]
  12. CALCIUM [Concomitant]
  13. VITAMIN B [Concomitant]
  14. VITAMIN E [Concomitant]

REACTIONS (1)
  - Visual impairment [Unknown]
